FAERS Safety Report 5133876-3 (Version None)
Quarter: 2006Q4

REPORT INFORMATION
  Report Type: 
  Country: None (occurrence: None)
  Receive Date: 20061018
  Receipt Date: 20061002
  Transmission Date: 20070319
  Serious: Yes (Hospitalization, Other)
  Sender: FDA-Public Use
  Company Number: US-2006-024242

PATIENT
  Age: 72 Year
  Sex: Female
  Weight: 53.1 kg

DRUGS (6)
  1. BETASERON [Suspect]
     Indication: RELAPSING-REMITTING MULTIPLE SCLEROSIS
     Dosage: 8 MIU, UNK, SUBCUTANEOUS
     Route: 058
     Dates: start: 20051201, end: 20060701
  2. PERCOCET [Concomitant]
  3. ATENOLOL [Concomitant]
  4. PLAVIX [Concomitant]
  5. VESICARE [Concomitant]
  6. PRAVASTATIN SODIUM [Concomitant]

REACTIONS (1)
  - BREAST CANCER IN SITU [None]
